FAERS Safety Report 5345064-6 (Version None)
Quarter: 2007Q2

REPORT INFORMATION
  Report Type: 
  Country: None (occurrence: None)
  Receive Date: 20070426
  Receipt Date: 20070203
  Transmission Date: 20071010
  Serious: Yes (Other)
  Sender: FDA-Public Use
  Company Number: 2007005629

PATIENT
  Age: 7 Year
  Sex: Female
  Weight: 16.3 kg

DRUGS (2)
  1. GENOTROPIN [Suspect]
     Indication: GROWTH HORMONE DEFICIENCY
     Dosage: 0.7 MG (0.7 MG,DAILY),SUBCUTANEOUS
     Route: 058
     Dates: start: 20060601, end: 20070108
  2. ALBUTEROL [Concomitant]

REACTIONS (1)
  - PAPILLOEDEMA [None]
